FAERS Safety Report 5299413-8 (Version None)
Quarter: 2007Q2

REPORT INFORMATION
  Report Type: 
  Country: None (occurrence: None)
  Receive Date: 20070411
  Receipt Date: 20070411
  Transmission Date: 20071010
  Serious: Yes (Other)
  Sender: FDA-Public Use
  Company Number: None

PATIENT
  Sex: Female
  Weight: 117.9352 kg

DRUGS (7)
  1. DILANTIN [Suspect]
     Indication: CONVULSION
     Dosage: 200MG Q12? PO
     Route: 048
     Dates: start: 20070308, end: 20070319
  2. FAMOTIDINE [Concomitant]
  3. GUAIFENESIN [Concomitant]
  4. OXYCODONE HCL [Concomitant]
  5. DEXAMETHASONE 0.5MG TAB [Concomitant]
  6. HEPARIN [Concomitant]
  7. BACT. SALINE [Concomitant]

REACTIONS (1)
  - RASH [None]
